FAERS Safety Report 18803518 (Version 2)
Quarter: 2021Q2

REPORT INFORMATION
  Report Type: Spontaneous
  Country: US (occurrence: US)
  Receive Date: 20210128
  Receipt Date: 20210630
  Transmission Date: 20210717
  Serious: Yes (Hospitalization)
  Sender: FDA-Public Use
  Company Number: US-TEVA-2021-US-1872158

PATIENT
  Age: 63 Year
  Sex: Male

DRUGS (1)
  1. POTASSIUM CHLORIDE. [Suspect]
     Active Substance: POTASSIUM CHLORIDE
     Indication: INTENTIONAL OVERDOSE
     Dosage: TOTAL AMOUNT =23.4 G, 60 DF
     Route: 048

REACTIONS (7)
  - Asthenia [Unknown]
  - Confusional state [Unknown]
  - Hyperkalaemia [Unknown]
  - Atrial fibrillation [Unknown]
  - Gastric ischaemia [Unknown]
  - Mental status changes [Unknown]
  - Intentional overdose [Unknown]
